FAERS Safety Report 5824802-X (Version None)
Quarter: 2008Q3

REPORT INFORMATION
  Report Type: 
  Country: None (occurrence: None)
  Receive Date: 20080728
  Receipt Date: 20080721
  Transmission Date: 20090109
  Serious: Yes (Hospitalization)
  Sender: FDA-Public Use
  Company Number: US-GILEAD-2007-0013439

PATIENT
  Sex: Male
  Weight: 115.77 kg

DRUGS (8)
  1. LETAIRIS [Suspect]
     Indication: PULMONARY ARTERIAL HYPERTENSION
     Route: 048
     Dates: start: 20070815, end: 20070914
  2. COUMADIN [Concomitant]
  3. REVATIO [Concomitant]
     Route: 048
  4. K-DUR [Concomitant]
     Route: 048
  5. LISINOPRIL [Concomitant]
     Route: 048
  6. METOLAZONE [Concomitant]
     Route: 048
  7. BUMETANIDE [Concomitant]
     Route: 048
  8. OMEPRAZOLE [Concomitant]
     Route: 048

REACTIONS (4)
  - ATRIAL FIBRILLATION [None]
  - DYSPNOEA [None]
  - OEDEMA PERIPHERAL [None]
  - RENAL FAILURE [None]
